FAERS Safety Report 7299054-7 (Version None)
Quarter: 2011Q1

REPORT INFORMATION
  Report Type: 
  Country: None (occurrence: None)
  Receive Date: 20110217
  Receipt Date: 20110217
  Transmission Date: 20110831
  Serious: Yes (Other)
  Sender: FDA-Public Use
  Company Number: None

PATIENT
  Age: 63 Year
  Sex: Male

DRUGS (2)
  1. TRIAD ALCOHOL PADS [Suspect]
  2. BETASERON [Concomitant]

REACTIONS (2)
  - INJECTION SITE PRURITUS [None]
  - PRODUCT QUALITY ISSUE [None]
